FAERS Safety Report 11070478 (Version 2)
Quarter: 2015Q2

REPORT INFORMATION
  Report Type: Spontaneous
  Country: GB (occurrence: GB)
  Receive Date: 20150427
  Receipt Date: 20150504
  Transmission Date: 20150821
  Serious: Yes (Other)
  Sender: FDA-Public Use
  Company Number: GB-PFIZER INC-2015136714

PATIENT
  Age: 67 Year
  Sex: Male

DRUGS (1)
  1. LYRICA [Suspect]
     Active Substance: PREGABALIN
     Dosage: 150 MG, 3X/DAY

REACTIONS (10)
  - Erectile dysfunction [Unknown]
  - Cognitive disorder [Unknown]
  - Bowel movement irregularity [Unknown]
  - Muscle disorder [Unknown]
  - Dysstasia [Unknown]
  - Paralysis [Unknown]
  - Suicidal ideation [Unknown]
  - Eye disorder [Unknown]
  - Aggression [Unknown]
  - Obsessive thoughts [Unknown]
